FAERS Safety Report 9665420 (Version 1)
Quarter: 2013Q4

REPORT INFORMATION
  Report Type: Spontaneous
  Country: US (occurrence: None)
  Receive Date: 20131031
  Receipt Date: 20131031
  Transmission Date: 20140711
  Serious: Yes (Life-Threatening, Disabling)
  Sender: FDA-Public Use
  Company Number: None

PATIENT
  Age: 70 Year
  Sex: Female
  Weight: 80.29 kg

DRUGS (5)
  1. CHOLETEC [Suspect]
     Indication: GALLBLADDER DISORDER
     Dates: start: 20130702
  2. DIOVAN [Suspect]
  3. METOPROLOL [Suspect]
  4. XANAX [Suspect]
  5. CENTRUM SILVER [Suspect]

REACTIONS (10)
  - Dizziness [None]
  - Gait disturbance [None]
  - Malaise [None]
  - Dysgeusia [None]
  - Feeling abnormal [None]
  - Tremor [None]
  - Muscular weakness [None]
  - Alopecia [None]
  - Weight decreased [None]
  - Asthenia [None]
